FAERS Safety Report 4822347-7 (Version None)
Quarter: 2005Q4

REPORT INFORMATION
  Report Type: 
  Country: None (occurrence: None)
  Receive Date: 20051104
  Receipt Date: 20051031
  Transmission Date: 20060501
  Serious: Yes (Death)
  Sender: FDA-Public Use
  Company Number: 200514357BCC

PATIENT
  Age: 66 Year
  Sex: Male
  Weight: 99.7913 kg

DRUGS (2)
  1. ALEVE (CAPLET) [Suspect]
     Indication: ABDOMINAL PAIN UPPER
     Dosage: 220-400 MG, QD, ORAL
     Route: 048
     Dates: start: 19950101, end: 20040101
  2. ASPIRIN [Suspect]
     Indication: ABDOMINAL PAIN UPPER
     Dosage: IRR, ORAL
     Route: 048
     Dates: end: 20040101

REACTIONS (1)
  - HEPATIC FAILURE [None]
